FAERS Safety Report 11177515 (Version 2)
Quarter: 2018Q2

REPORT INFORMATION
  Report Type: Spontaneous
  Country: US (occurrence: US)
  Receive Date: 20150610
  Receipt Date: 20180628
  Transmission Date: 20180711
  Serious: Yes (Other)
  Sender: FDA-Public Use
  Company Number: US-ASTELLAS-2015US017180

PATIENT
  Age: 73 Year
  Sex: Male

DRUGS (2)
  1. XTANDI [Suspect]
     Active Substance: ENZALUTAMIDE
     Indication: PROSTATE CANCER
  2. XTANDI [Suspect]
     Active Substance: ENZALUTAMIDE
     Indication: PROSTATE CANCER
     Dosage: 160 MG (4 CAPSULES A DAY), ONCE DAILY
     Route: 048
     Dates: start: 20150219

REACTIONS (9)
  - Decreased appetite [Unknown]
  - Ulcerative keratitis [Unknown]
  - Dysgeusia [Unknown]
  - Corneal perforation [Unknown]
  - Eye infection [Unknown]
  - Fall [Unknown]
  - Weight decreased [Unknown]
  - Lower limb fracture [Unknown]
  - Fatigue [Unknown]

NARRATIVE: CASE EVENT DATE: 20150518
